FAERS Safety Report 4662199-1 (Version None)
Quarter: 2005Q2

REPORT INFORMATION
  Report Type: 
  Country: None (occurrence: None)
  Receive Date: 20050512
  Receipt Date: 20050429
  Transmission Date: 20051028
  Serious: Yes (Other)
  Sender: FDA-Public Use
  Company Number: 2005062855

PATIENT
  Age: 49 Year
  Sex: Female
  Weight: 31.0714 kg

DRUGS (7)
  1. BEXTRA [Suspect]
     Indication: ARTHRITIS
     Dosage: 20 MG (20 MG, 1 IN 1 D), ORAL
     Route: 048
  2. BEXTRA [Suspect]
     Indication: OSTEOARTHRITIS
     Dosage: 20 MG (20 MG, 1 IN 1 D), ORAL
     Route: 048
  3. ARTHROTEC [Suspect]
     Indication: ARTHRITIS
     Dosage: (2 IN 1 D), ORAL
     Route: 048
     Dates: start: 20050401
  4. ARTHROTEC [Suspect]
     Indication: OSTEOARTHRITIS
     Dosage: (2 IN 1 D), ORAL
     Route: 048
     Dates: start: 20050401
  5. SERTRALINE HCL [Concomitant]
  6. ANTIHYPERTENSIVES (ANTIHYPERTENSIVES) [Concomitant]
  7. GABAPENTIN [Concomitant]

REACTIONS (14)
  - ARTHRITIS [None]
  - BLADDER DISORDER [None]
  - BLISTER [None]
  - BLOOD PRESSURE ABNORMAL [None]
  - CORNEAL EPITHELIUM DISORDER [None]
  - CYSTITIS [None]
  - DRUG INEFFECTIVE [None]
  - IMPAIRED HEALING [None]
  - MEMORY IMPAIRMENT [None]
  - NASOPHARYNGITIS [None]
  - PAIN [None]
  - POST PROCEDURAL COMPLICATION [None]
  - RASH [None]
  - SWELLING FACE [None]
